FAERS Safety Report 6899252-8 (Version None)
Quarter: 2010Q3

REPORT INFORMATION
  Report Type: 
  Country: None (occurrence: None)
  Receive Date: 20100802
  Receipt Date: 20080319
  Transmission Date: 20110219
  Serious: Yes (Other)
  Sender: FDA-Public Use
  Company Number: US-PFIZER INC-2007095414

PATIENT
  Sex: Female
  Weight: 83.9 kg

DRUGS (17)
  1. LYRICA [Suspect]
     Indication: FIBROMYALGIA
     Dates: start: 20070919, end: 20071109
  2. LYRICA [Suspect]
     Indication: BACK PAIN
  3. PHENOBARBITAL [Concomitant]
  4. EDECRIN [Concomitant]
  5. LISINOPRIL [Concomitant]
  6. CLONIDINE [Concomitant]
  7. LEVOTHYROXINE SODIUM [Concomitant]
  8. DARVOCET [Concomitant]
  9. SKELAXIN [Concomitant]
  10. LIDOCAINE [Concomitant]
     Route: 062
  11. BENTYL [Concomitant]
  12. ALL OTHER THERAPEUTIC PRODUCTS [Concomitant]
  13. VISTARIL [Concomitant]
  14. AMBIEN [Concomitant]
  15. NORVASC [Concomitant]
  16. ZOLOFT [Concomitant]
  17. DIAZEPAM [Concomitant]

REACTIONS (11)
  - ANGIOEDEMA [None]
  - APNOEIC ATTACK [None]
  - BLOOD PRESSURE INCREASED [None]
  - DYSPNOEA [None]
  - ELECTROENCEPHALOGRAM ABNORMAL [None]
  - HEART RATE DECREASED [None]
  - HYPERSENSITIVITY [None]
  - OEDEMA [None]
  - OXYGEN SATURATION DECREASED [None]
  - POOR QUALITY SLEEP [None]
  - WEIGHT INCREASED [None]
